FAERS Safety Report 21011806 (Version 1)
Quarter: 2022Q2

REPORT INFORMATION
  Report Type: Spontaneous
  Country: US (occurrence: US)
  Receive Date: 20220627
  Receipt Date: 20220627
  Transmission Date: 20220721
  Serious: No
  Sender: FDA-Public Use
  Company Number: US-PURDUE-USA-2015-0122644

PATIENT
  Sex: Male

DRUGS (5)
  1. HYDROCODONE BITARTRATE AND ACETAMINOPHEN [Suspect]
     Active Substance: ACETAMINOPHEN\HYDROCODONE BITARTRATE
     Indication: Product used for unknown indication
     Dosage: UNKNOWN
     Route: 048
  2. TRAMADOL [Suspect]
     Active Substance: TRAMADOL
     Indication: Headache
     Dosage: UNKNOWN
     Route: 048
  3. COLACE [Suspect]
     Active Substance: DOCUSATE SODIUM
     Indication: Bowel movement irregularity
     Dosage: 200 MG, DAILY
     Route: 048
     Dates: start: 20150410
  4. CLONAZEPAM [Suspect]
     Active Substance: CLONAZEPAM
     Indication: Nerve injury
     Dosage: UNKNOWN
     Route: 065
  5. BONINE [Suspect]
     Active Substance: MECLIZINE HYDROCHLORIDE
     Indication: Product used for unknown indication
     Dosage: UNKNOWN
     Route: 048

REACTIONS (2)
  - Abdominal distension [Unknown]
  - Dyspnoea [Unknown]
